FAERS Safety Report 25095152 (Version 2)
Quarter: 2025Q3

REPORT INFORMATION
  Report Type: Spontaneous
  Country: MK (occurrence: MK)
  Receive Date: 20250319
  Receipt Date: 20250729
  Transmission Date: 20251021
  Serious: Yes (Hospitalization)
  Sender: ALNYLAM PHARMACEUTICALS
  Company Number: MK-ALNYLAM PHARMACEUTICALS, INC.-ALN-2025-001757

PATIENT

DRUGS (2)
  1. ONPATTRO [Suspect]
     Active Substance: PATISIRAN SODIUM
     Indication: Hereditary neuropathic amyloidosis
     Route: 065
     Dates: start: 20250218, end: 20250218
  2. ONPATTRO [Suspect]
     Active Substance: PATISIRAN SODIUM
     Indication: Cardiac amyloidosis

REACTIONS (4)
  - Iron deficiency anaemia [Not Recovered/Not Resolved]
  - Off label use [Not Recovered/Not Resolved]
  - Laboratory test abnormal [Unknown]
  - Intentional dose omission [Unknown]

NARRATIVE: CASE EVENT DATE: 20250218
